FAERS Safety Report 18895202 (Version 7)
Quarter: 2023Q4

REPORT INFORMATION
  Report Type: Spontaneous
  Country: US (occurrence: US)
  Receive Date: 20210215
  Receipt Date: 20231003
  Transmission Date: 20240109
  Serious: No
  Sender: FDA-Public Use
  Company Number: US-PFIZER INC-2021130337

PATIENT
  Age: 73 Year
  Sex: Female
  Weight: 74.5 kg

DRUGS (2)
  1. IBRANCE [Suspect]
     Active Substance: PALBOCICLIB
     Indication: Breast cancer stage IV
     Dosage: 100 MG, ONCE DAILY, 21 DAYS ON AND 7 DAYS OFF, EVERY CYCLE 28 DAYS
     Route: 048
     Dates: start: 20200715
  2. IBRANCE [Suspect]
     Active Substance: PALBOCICLIB
     Dosage: 100 MG, 1 TABLET ONCE DAILY FOR 21 DAYS FOLLOWED BY 7 DAYS OFF, EVERY CYCLE=28 DAYS (SWALLOW WHOLE)
     Route: 048
     Dates: start: 20221221

REACTIONS (3)
  - Rash [Recovering/Resolving]
  - Fatigue [Recovering/Resolving]
  - Illness [Unknown]

NARRATIVE: CASE EVENT DATE: 20210101
